FAERS Safety Report 8358267-3 (Version None)
Quarter: 2012Q2

REPORT INFORMATION
  Report Type: 
  Country: None (occurrence: None)
  Receive Date: 20120514
  Receipt Date: 20120510
  Transmission Date: 20120825
  Serious: Yes (Other)
  Sender: FDA-Public Use
  Company Number: US-ROCHE-1027935

PATIENT
  Sex: Female

DRUGS (1)
  1. XOLAIR [Suspect]
     Indication: ASTHMA
     Route: 058
     Dates: start: 20111221

REACTIONS (4)
  - DISORIENTATION [None]
  - LOSS OF CONSCIOUSNESS [None]
  - SYNCOPE [None]
  - DIZZINESS [None]
